FAERS Safety Report 8483921-2 (Version None)
Quarter: 2012Q2

REPORT INFORMATION
  Report Type: 
  Country: None (occurrence: None)
  Receive Date: 20120402
  Receipt Date: 20110523
  Transmission Date: 20120825
  Serious: Yes (Hospitalization)
  Sender: FDA-Public Use
  Company Number: A-US2011-49342

PATIENT
  Age: 49 Year
  Sex: Female

DRUGS (3)
  1. EPOPROSTENOL SODIUM [Suspect]
     Indication: PULMONARY ARTERIAL HYPERTENSION
     Dosage: 19 NG/KG, PER MIN, INTRAVENOUS
     Route: 042
     Dates: start: 20100611
  2. SILDENAFIL CITRATE [Concomitant]
  3. LETAIRIS [Concomitant]

REACTIONS (2)
  - INFECTION [None]
  - CATHETER SITE ERYTHEMA [None]
